FAERS Safety Report 8101463-0 (Version None)
Quarter: 2012Q1

REPORT INFORMATION
  Report Type: 
  Country: None (occurrence: None)
  Receive Date: 20120129
  Receipt Date: 20111025
  Transmission Date: 20120608
  Serious: No
  Sender: FDA-Public Use
  Company Number: US-ABBOTT-11P-163-0863054-00

PATIENT
  Age: 63 Year
  Sex: Female

DRUGS (19)
  1. EPIDRIN [Concomitant]
     Indication: VENTRICULAR EXTRASYSTOLES
  2. VITAMIN B-12 [Concomitant]
     Indication: VITAMIN B12 DEFICIENCY
  3. CRANBERRY FRUIT [Concomitant]
     Indication: PRODUCT USED FOR UNKNOWN INDICATION
  4. HUMIRA [Suspect]
  5. NEXIUM [Concomitant]
     Indication: PRODUCT USED FOR UNKNOWN INDICATION
  6. ASMANEX TWISTHALER [Concomitant]
     Indication: ASTHMA
  7. EPIDRIN [Concomitant]
     Indication: ATRIAL FIBRILLATION
  8. HUMIRA [Suspect]
     Indication: CROHN'S DISEASE
     Dates: start: 20110819, end: 20111018
  9. LOVAZA [Concomitant]
     Indication: PRODUCT USED FOR UNKNOWN INDICATION
     Dosage: 1-2 DAILY
  10. BUDESONIDE [Concomitant]
     Indication: INFLAMMATION
  11. CENTRUM CARDIO VITAMIN [Concomitant]
     Indication: PRODUCT USED FOR UNKNOWN INDICATION
  12. ATENOLOL [Concomitant]
     Indication: ATRIAL FIBRILLATION
     Dosage: 1-2 PILLS DAILY
  13. VITAMIN D [Concomitant]
     Indication: PRODUCT USED FOR UNKNOWN INDICATION
  14. DILTIAZEM HCL [Concomitant]
     Indication: HYPERTENSION
  15. BUDESONIDE [Concomitant]
     Dates: start: 20111006
  16. ATENOLOL [Concomitant]
     Indication: VENTRICULAR EXTRASYSTOLES
  17. LORAZEPAM [Concomitant]
     Indication: NERVOUSNESS
  18. SERTRALINE HYDROCHLORIDE [Concomitant]
     Indication: PRODUCT USED FOR UNKNOWN INDICATION
  19. CALTRATE 600 +D [Concomitant]
     Indication: PRODUCT USED FOR UNKNOWN INDICATION
     Dosage: 1-2 DAILY

REACTIONS (3)
  - OROPHARYNGEAL PAIN [None]
  - ORAL PAIN [None]
  - CANDIDIASIS [None]
